FAERS Safety Report 16835700 (Version 1)
Quarter: 2019Q3

REPORT INFORMATION
  Report Type: Spontaneous
  Country: CA (occurrence: CA)
  Receive Date: 20190920
  Receipt Date: 20190920
  Transmission Date: 20191005
  Serious: Yes (Other)
  Sender: FDA-Public Use
  Company Number: CA-TEVA-2019-CA-1110723

PATIENT
  Age: 10 Year
  Sex: Male

DRUGS (21)
  1. CIPROFLOXACIN HYDROCHLORIDE. [Interacting]
     Active Substance: CIPROFLOXACIN HYDROCHLORIDE
     Indication: PRODUCT USED FOR UNKNOWN INDICATION
     Route: 048
  2. MONTELUKAST SODIUM. [Interacting]
     Active Substance: MONTELUKAST SODIUM
     Indication: PRODUCT USED FOR UNKNOWN INDICATION
     Route: 048
  3. SULFAMETHOXAZOLE AND TRIMETHOPRIM [Interacting]
     Active Substance: SULFAMETHOXAZOLE\TRIMETHOPRIM
     Indication: PRODUCT USED FOR UNKNOWN INDICATION
     Route: 048
  4. MONTELUKAST SODIUM. [Interacting]
     Active Substance: MONTELUKAST SODIUM
     Route: 048
  5. NIFEDIPINE. [Interacting]
     Active Substance: NIFEDIPINE
     Indication: PRODUCT USED FOR UNKNOWN INDICATION
     Route: 048
  6. AZITHROMYCIN ANHYDROUS. [Suspect]
     Active Substance: AZITHROMYCIN ANHYDROUS
     Indication: PRODUCT USED FOR UNKNOWN INDICATION
     Route: 048
  7. PANTOPRAZOLE SODIUM ANHYDROUS [Interacting]
     Active Substance: PANTOPRAZOLE SODIUM ANHYDROUS
     Indication: PRODUCT USED FOR UNKNOWN INDICATION
     Route: 048
  8. PANTOPRAZOLE SODIUM ANHYDROUS [Interacting]
     Active Substance: PANTOPRAZOLE SODIUM ANHYDROUS
     Route: 042
  9. CIPROFLOXACIN. [Interacting]
     Active Substance: CIPROFLOXACIN
     Indication: PRODUCT USED FOR UNKNOWN INDICATION
     Route: 048
  10. MYCOPHENOLATE MOFETIL. [Interacting]
     Active Substance: MYCOPHENOLATE MOFETIL
     Indication: PROPHYLAXIS AGAINST TRANSPLANT REJECTION
     Route: 048
  11. MYCOPHENOLATE MOFETIL. [Interacting]
     Active Substance: MYCOPHENOLATE MOFETIL
     Route: 048
  12. PREDNISONE. [Interacting]
     Active Substance: PREDNISONE
     Indication: PROPHYLAXIS AGAINST TRANSPLANT REJECTION
     Route: 048
  13. SULFAMETHOXAZOLE/TRIMETHOPRIM [Interacting]
     Active Substance: SULFAMETHOXAZOLE\TRIMETHOPRIM
     Route: 048
  14. VORICONAZOLE. [Interacting]
     Active Substance: VORICONAZOLE
     Indication: FUNGAL INFECTION
     Route: 048
  15. PANTOPRAZOLE [Interacting]
     Active Substance: PANTOPRAZOLE
     Indication: PRODUCT USED FOR UNKNOWN INDICATION
     Route: 048
  16. SULFAMETHOXAZOLE AND TRIMETHOPRIM [Interacting]
     Active Substance: SULFAMETHOXAZOLE\TRIMETHOPRIM
     Route: 048
  17. SULFAMETHOXAZOLE/TRIMETHOPRIM [Interacting]
     Active Substance: SULFAMETHOXAZOLE\TRIMETHOPRIM
     Indication: PRODUCT USED FOR UNKNOWN INDICATION
     Route: 048
  18. CASPOFUNGIN ACETATE. [Suspect]
     Active Substance: CASPOFUNGIN ACETATE
     Indication: ANTIFUNGAL PROPHYLAXIS
     Route: 042
  19. TACROLIMUS. [Interacting]
     Active Substance: TACROLIMUS
     Indication: PROPHYLAXIS AGAINST TRANSPLANT REJECTION
     Route: 048
  20. AZITHROMYCIN ANHYDROUS. [Interacting]
     Active Substance: AZITHROMYCIN ANHYDROUS
     Route: 048
  21. CASPOFUNGIN ACETATE. [Suspect]
     Active Substance: CASPOFUNGIN ACETATE
     Indication: PRODUCT USED FOR UNKNOWN INDICATION
     Route: 042

REACTIONS (7)
  - Drug interaction [Not Recovered/Not Resolved]
  - Solar lentigo [Not Recovered/Not Resolved]
  - Photodermatosis [Not Recovered/Not Resolved]
  - Squamous cell carcinoma of skin [Not Recovered/Not Resolved]
  - Actinic keratosis [Not Recovered/Not Resolved]
  - Dysplastic naevus [Not Recovered/Not Resolved]
  - Photosensitivity reaction [Not Recovered/Not Resolved]
